FAERS Safety Report 4505521-9 (Version None)
Quarter: 2004Q4

REPORT INFORMATION
  Report Type: 
  Country: None (occurrence: None)
  Receive Date: 20041025
  Receipt Date: 20040728
  Transmission Date: 20050328
  Serious: Yes (Other)
  Sender: FDA-Public Use
  Company Number: US-JNJFOC-20031006265

PATIENT
  Sex: Female

DRUGS (4)
  1. REMICADE [Suspect]
     Indication: CROHN'S DISEASE
     Dosage: ON AND OFF FOR YEARS;  10 MG/KG, INTRAVENOUS
     Dates: start: 20001201
  2. MERCAPTOPURINE [Concomitant]
  3. ANTIHISTAMINE (ANTIHISTAMINES) [Concomitant]
  4. CORTICOSTEROID (CORTICOSTEROIDS) [Concomitant]

REACTIONS (4)
  - ARTHRALGIA [None]
  - MYALGIA [None]
  - SYNCOPE [None]
  - THERAPEUTIC RESPONSE DECREASED [None]
